FAERS Safety Report 5689261-9 (Version None)
Quarter: 2008Q1

REPORT INFORMATION
  Report Type: 
  Country: None (occurrence: None)
  Receive Date: 20080331
  Receipt Date: 20080318
  Transmission Date: 20080703
  Serious: Yes (Hospitalization)
  Sender: FDA-Public Use
  Company Number: CA-ELI_LILLY_AND_COMPANY-CA200712001604

PATIENT
  Age: 80 Year
  Sex: Female
  Weight: 49.433 kg

DRUGS (20)
  1. FORTEO [Suspect]
     Indication: OSTEOPOROSIS
     Dosage: 20 UG, DAILY (1/D)
     Route: 058
     Dates: start: 20061020
  2. CALCIUM [Concomitant]
  3. VITAMIN B [Concomitant]
  4. ASCORBIC ACID [Concomitant]
  5. VITAMIN D [Concomitant]
  6. ATIVAN [Concomitant]
  7. HYDROMORPHONE HCL [Concomitant]
  8. OXYCOCET [Concomitant]
  9. NORVASC [Concomitant]
  10. DOCUSATE [Concomitant]
  11. LIPITOR [Concomitant]
  12. LOSEC I.V. [Concomitant]
  13. ASPIRIN [Concomitant]
     Dosage: 81 MG, UNK
  14. MILK OF MAGNESIA [Concomitant]
  15. GRAVOL TAB [Concomitant]
  16. CELEBREX [Concomitant]
  17. XALATAN [Concomitant]
  18. EFFEXOR [Concomitant]
  19. LYRICA [Concomitant]
  20. ZOFRAN [Concomitant]

REACTIONS (3)
  - EXOSTOSIS [None]
  - HYPOAESTHESIA [None]
  - SKIN LESION [None]
